FAERS Safety Report 7477516-7 (Version None)
Quarter: 2011Q2

REPORT INFORMATION
  Report Type: 
  Country: None (occurrence: None)
  Receive Date: 20110511
  Receipt Date: 20110511
  Transmission Date: 20111010
  Serious: No
  Sender: FDA-Public Use
  Company Number: None

PATIENT
  Sex: Male

DRUGS (1)
  1. BISOPROLOL FUMARATE [Suspect]
     Dosage: 5 MG 1/2 TAB DAILY BY MOUTH
     Route: 048

REACTIONS (7)
  - RASH GENERALISED [None]
  - DIAPHRAGMATIC DISORDER [None]
  - PRODUCT SUBSTITUTION ISSUE [None]
  - SENSATION OF HEAVINESS [None]
  - MALAISE [None]
  - PRURITUS GENERALISED [None]
  - STOMACH MASS [None]
